FAERS Safety Report 23991308 (Version 1)
Quarter: 2024Q2

REPORT INFORMATION
  Report Type: Spontaneous
  Country: US (occurrence: US)
  Receive Date: 20240619
  Receipt Date: 20240619
  Transmission Date: 20240716
  Serious: No
  Sender: FDA-Public Use
  Company Number: US-PFIZER INC-202400193992

PATIENT
  Age: 78 Year
  Sex: Female
  Weight: 74.39 kg

DRUGS (7)
  1. IBRANCE [Suspect]
     Active Substance: PALBOCICLIB
     Indication: Breast cancer female
     Dosage: 75 MG, CYCLIC (FOR 21 DAYS AND THEN 7 DAYS OFF)
     Dates: start: 202211
  2. IBRANCE [Suspect]
     Active Substance: PALBOCICLIB
     Dosage: UNK
  3. IBRANCE [Suspect]
     Active Substance: PALBOCICLIB
     Dosage: UNK
  4. IBRANCE [Suspect]
     Active Substance: PALBOCICLIB
     Dosage: UNK
  5. IBRANCE [Suspect]
     Active Substance: PALBOCICLIB
     Dosage: UNK
  6. ARIMIDEX [Suspect]
     Active Substance: ANASTROZOLE
     Dosage: 1 MG, 1X/DAY (1MG TABLET THAT WAS TAKEN ON A DAILY BASIS IN THE EVENING)
     Dates: end: 202404
  7. FASLODEX [Suspect]
     Active Substance: FULVESTRANT
     Dosage: THREE WEEKS, GET TWO INJECTIONS IN THE BUTT /ONE INJECTION EVERY MONTH

REACTIONS (2)
  - Rash papular [Recovered/Resolved]
  - Skin lesion [Not Recovered/Not Resolved]

NARRATIVE: CASE EVENT DATE: 20230101
